FAERS Safety Report 8434772-6 (Version None)
Quarter: 2012Q2

REPORT INFORMATION
  Report Type: 
  Country: None (occurrence: None)
  Receive Date: 20120614
  Receipt Date: 20120604
  Transmission Date: 20120825
  Serious: Yes (Hospitalization)
  Sender: FDA-Public Use
  Company Number: JP-JNJFOC-20120604221

PATIENT
  Age: 64 Year
  Sex: Female

DRUGS (6)
  1. REMICADE [Suspect]
     Route: 042
     Dates: start: 20120522
  2. STELARA [Concomitant]
     Route: 065
  3. AMLODIPINE [Concomitant]
     Route: 048
  4. CLOBETASOL PROPIONATE [Concomitant]
     Route: 065
  5. DOVONEX [Concomitant]
     Route: 065
  6. REMICADE [Suspect]
     Indication: PSORIASIS
     Route: 042

REACTIONS (3)
  - TYPE IV HYPERSENSITIVITY REACTION [None]
  - ARTHRALGIA [None]
  - C-REACTIVE PROTEIN INCREASED [None]
